FAERS Safety Report 12620210 (Version 2)
Quarter: 2016Q4

REPORT INFORMATION
  Report Type: Spontaneous
  Country: US (occurrence: US)
  Receive Date: 20160803
  Receipt Date: 20161024
  Transmission Date: 20170207
  Serious: No
  Sender: FDA-Public Use
  Company Number: US-CELGENEUS-USA-2016080036

PATIENT
  Age: 61 Year
  Sex: Male

DRUGS (2)
  1. OTEZLA [Suspect]
     Active Substance: APREMILAST
     Indication: PSORIATIC ARTHROPATHY
  2. OTEZLA [Suspect]
     Active Substance: APREMILAST
     Indication: PSORIASIS
     Dosage: 60 MILLIGRAM
     Route: 048

REACTIONS (18)
  - Obsessive-compulsive disorder [Unknown]
  - Nausea [Unknown]
  - Heart rate increased [Unknown]
  - Abulia [Unknown]
  - Eating disorder [Unknown]
  - Speech disorder [Unknown]
  - Headache [Unknown]
  - Slow response to stimuli [Unknown]
  - Diarrhoea [Unknown]
  - Paranoia [Unknown]
  - Mood swings [Unknown]
  - Repetitive speech [Unknown]
  - Depression [Unknown]
  - Hyperhidrosis [Unknown]
  - Disturbance in attention [Unknown]
  - Panic attack [Unknown]
  - Frequent bowel movements [Unknown]
  - Memory impairment [Unknown]

NARRATIVE: CASE EVENT DATE: 20160614
